FAERS Safety Report 4553458-1 (Version None)
Quarter: 2005Q1

REPORT INFORMATION
  Report Type: 
  Country: None (occurrence: None)
  Receive Date: 20050112
  Receipt Date: 20041222
  Transmission Date: 20050727
  Serious: Yes (Hospitalization, Disabling)
  Sender: FDA-Public Use
  Company Number: JP_030901726

PATIENT
  Age: 62 Year
  Sex: Female
  Weight: 53 kg

DRUGS (6)
  1. ZYPREXA [Suspect]
     Indication: SCHIZOPHRENIA
     Dosage: 10 MG AT BEDTIME
     Dates: start: 20021201, end: 20030910
  2. HALOPERIDOL [Concomitant]
  3. DEPAS (ETIZOLAM) [Concomitant]
  4. ARTANE (TRIHEHYPHENIDYL HYDROCHLORIDE) [Concomitant]
  5. CHLORPROMAZINE HCL [Concomitant]
  6. PURSENNIDE (SENNA LEAF) [Concomitant]

REACTIONS (7)
  - BRONCHITIS [None]
  - ELECTROCARDIOGRAM Q WAVE ABNORMAL [None]
  - HYPOTONIA [None]
  - HYPOXIA [None]
  - RADIAL NERVE PALSY [None]
  - RESPIRATORY FAILURE [None]
  - SLEEP APNOEA SYNDROME [None]
